FAERS Safety Report 4570047-3 (Version None)
Quarter: 2005Q1

REPORT INFORMATION
  Report Type: 
  Country: None (occurrence: None)
  Receive Date: 20050125
  Receipt Date: 20050125
  Transmission Date: 20050727
  Serious: Yes (Other)
  Sender: FDA-Public Use
  Company Number: None

PATIENT
  Age: 55 Year
  Sex: Male
  Weight: 105.2345 kg

DRUGS (4)
  1. GABAPENTIN 300 MG (NEURONTIC GENERIC) [Suspect]
     Indication: CONVULSION
     Dosage: 300 MG PO BID
     Route: 048
  2. PRIMIDONE [Suspect]
     Indication: CONVULSION
     Dosage: 50MG PO Q HS
     Route: 048
  3. TEGRETOL [Concomitant]
  4. DEPAKOTE [Concomitant]

REACTIONS (4)
  - AURA [None]
  - CONDITION AGGRAVATED [None]
  - PHARMACEUTICAL PRODUCT COMPLAINT [None]
  - SIMPLE PARTIAL SEIZURES [None]
